FAERS Safety Report 4533560-0 (Version None)
Quarter: 2004Q4

REPORT INFORMATION
  Report Type: 
  Country: None (occurrence: None)
  Receive Date: 20041206
  Receipt Date: 20041004
  Transmission Date: 20050328
  Serious: No
  Sender: FDA-Public Use
  Company Number: USA041080010

PATIENT
  Age: 96 Year
  Sex: Male

DRUGS (4)
  1. CYMBALTA [Suspect]
     Indication: DEPRESSION
     Dosage: 30 MG DAY
     Dates: start: 20040930, end: 20040930
  2. NORVASC [Concomitant]
  3. PREVACID [Concomitant]
  4. ACETAMINOPHEN [Concomitant]

REACTIONS (2)
  - GAIT DISTURBANCE [None]
  - SOMNOLENCE [None]
